FAERS Safety Report 16636669 (Version 4)
Quarter: 2019Q3

REPORT INFORMATION
  Report Type: Spontaneous
  Country: FR (occurrence: FR)
  Receive Date: 20190726
  Receipt Date: 20190918
  Transmission Date: 20191004
  Serious: Yes (Death, Other)
  Sender: FDA-Public Use
  Company Number: FR-EISAI MEDICAL RESEARCH-EC-2019-059504

PATIENT
  Age: 59 Year
  Sex: Female

DRUGS (1)
  1. HALAVEN [Suspect]
     Active Substance: ERIBULIN MESYLATE
     Indication: TRIPLE NEGATIVE BREAST CANCER
     Dosage: DOSAGE UNKNOWN
     Route: 041
     Dates: start: 20180918, end: 20190108

REACTIONS (6)
  - Malignant neoplasm progression [Not Recovered/Not Resolved]
  - Death [Fatal]
  - Scleroderma [Not Recovered/Not Resolved]
  - Neuropathy peripheral [Not Recovered/Not Resolved]
  - Raynaud^s phenomenon [Not Recovered/Not Resolved]
  - Restrictive pulmonary disease [Not Recovered/Not Resolved]

NARRATIVE: CASE EVENT DATE: 2019
